FAERS Safety Report 9000865 (Version 1)
Quarter: 2013Q1

REPORT INFORMATION
  Report Type: Spontaneous
  Country: US (occurrence: US)
  Receive Date: 20130107
  Receipt Date: 20130107
  Transmission Date: 20140127
  Serious: No
  Sender: FDA-Public Use
  Company Number: US-COVIDIEN/TYCO HEALTHCARE/MALLINCKRODT-T201200542

PATIENT
  Age: 48 Year
  Sex: Female

DRUGS (1)
  1. OPTIRAY [Suspect]
     Indication: SPINAL MYELOGRAM
     Dosage: 4-5 ML, SINGLE
     Route: 037
     Dates: start: 20120125, end: 20120125

REACTIONS (3)
  - Muscular weakness [Recovered/Resolved]
  - Headache [Recovered/Resolved]
  - Incorrect route of drug administration [Unknown]
